FAERS Safety Report 6818577-5 (Version None)
Quarter: 2010Q3

REPORT INFORMATION
  Report Type: 
  Country: None (occurrence: None)
  Receive Date: 20100706
  Receipt Date: 20090308
  Transmission Date: 20110219
  Serious: Yes (Hospitalization)
  Sender: FDA-Public Use
  Company Number: US-PFIZER INC-2008152584

PATIENT
  Sex: Female
  Weight: 78.63 kg

DRUGS (4)
  1. ZITHROMAX [Suspect]
     Indication: UPPER RESPIRATORY TRACT INFECTION
     Dosage: UNK
     Dates: start: 20060201
  2. KETEK [Suspect]
     Indication: UPPER RESPIRATORY TRACT INFECTION
     Dosage: 300 MG, 2X/DAY
     Route: 048
     Dates: start: 20060216, end: 20060217
  3. LEVOTHYROXINE [Suspect]
  4. GABAPENTIN [Suspect]

REACTIONS (2)
  - DRUG INEFFECTIVE [None]
  - HEPATITIS ACUTE [None]
